FAERS Safety Report 8837914 (Version 4)
Quarter: 2013Q3

REPORT INFORMATION
  Report Type: Report from Study
  Country: DE (occurrence: DE)
  Receive Date: 20121012
  Receipt Date: 20130725
  Transmission Date: 20140515
  Serious: Yes (Hospitalization, Other)
  Sender: FDA-Public Use
  Company Number: DE-GENZYME-CAMP-1002465

PATIENT
  Age: 75 Year
  Sex: Female
  Weight: 70 kg

DRUGS (21)
  1. CAMPATH [Suspect]
     Indication: T-CELL PROLYMPHOCYTIC LEUKAEMIA
     Dosage: 10 MG, QD (DAY 1-3); FIRST CYCLE; INDUCTION THERAPY
     Route: 058
     Dates: start: 20120207, end: 20120209
  2. CAMPATH [Suspect]
     Dosage: 10 MG, QD(DAY 1-3); SECOND CYCLE; INDUCTION THERAPY
     Route: 058
     Dates: start: 20120313, end: 20120315
  3. CAMPATH [Suspect]
     Dosage: 10 MG, QD (DAY 1-3); THIRD CYCLE; INDUCTION THERAPY
     Route: 058
     Dates: start: 20120417, end: 20120419
  4. CAMPATH [Suspect]
     Dosage: 10 MG, QD (DAY 1-3); FOURTH CYCLE; INDUCTION THERAPY
     Route: 058
     Dates: start: 20120523, end: 20120525
  5. CAMPATH [Suspect]
     Dosage: 10 MG, QD , MAINTAINENCE THERAPY
     Route: 058
     Dates: start: 20120928, end: 201302
  6. FLUDARA [Suspect]
     Indication: T-CELL PROLYMPHOCYTIC LEUKAEMIA
     Dosage: 36.3 MG , QD; (DAY 1-3); (FIRST CYCLE) INDUCTION THERAPY
     Route: 042
     Dates: start: 20120207, end: 20120209
  7. FLUDARA [Suspect]
     Dosage: 28.8MG , QD; INDUCTION THERAPY; (DAY 1-3); (SECOND CYCLE); DOSE REDUCTION OF 80%
     Route: 042
     Dates: start: 20120313, end: 20120315
  8. FLUDARA [Suspect]
     Dosage: 28.8 MG , QD; INDUCTION THERAPY; (DAY 1-3); (THIRD CYCLE); DOSE REDUCTION OF 80%
     Route: 042
     Dates: start: 20120417, end: 20120419
  9. FLUDARA [Suspect]
     Dosage: 28.8 MG , QD; INDUCTION THERAPY; (DAY 1-3); (FOURTH CYCLE); DOSE REDUCTION OF 80%
     Route: 042
     Dates: start: 20120523, end: 20120525
  10. MITOXANTRONE [Suspect]
     Indication: T-CELL PROLYMPHOCYTIC LEUKAEMIA
     Dosage: 11 MG, QD; DAY 1; INDUCTION THERAPY; FIRST CYCLE
     Route: 042
     Dates: start: 20120207, end: 20120207
  11. MITOXANTRONE [Suspect]
     Dosage: 10.8 MG, QD; DAY 1; INDUCTION THERAPY; SECOND CYCLE
     Route: 042
     Dates: start: 20120313, end: 20120313
  12. MITOXANTRONE [Suspect]
     Dosage: 10 MG, QD; DAY 1; INDUCTION THERAPY; THIRD CYCLE
     Route: 042
     Dates: start: 20120417, end: 20120417
  13. MITOXANTRONE [Suspect]
     Dosage: 10 MG, QD; DAY 1; INDUCTION THERAPY; FOURTH CYCLE
     Route: 042
     Dates: start: 20120523, end: 20120523
  14. CYCLOPHOSPHAMIDE [Suspect]
     Indication: T-CELL PROLYMPHOCYTIC LEUKAEMIA
     Dosage: 360 MG, QD; (DAY 1-3); INDUCTION THERAPY ; FIRST CYCLE
     Route: 042
     Dates: start: 20120207, end: 20120209
  15. CYCLOPHOSPHAMIDE [Suspect]
     Dosage: 270 MG, QD; (DAY 1-3); INDUCTION THERAPY ; SECOND CYCLE; DOSE REDUCTION OF 75%
     Route: 042
     Dates: start: 20120313, end: 20120315
  16. CYCLOPHOSPHAMIDE [Suspect]
     Dosage: 270 MG, QD; (DAY 1-3); INDUCTION THERAPY ;  THIRD CYCLE; DOSE REDUCTION OF 75%
     Route: 042
     Dates: start: 20120417, end: 20120419
  17. CYCLOPHOSPHAMIDE [Suspect]
     Dosage: 260 MG, QD; (DAY 1-3); INDUCTION THERAPY ;FOURTH CYCLE; DOSE REDUCTION OF 75%
     Route: 042
     Dates: start: 20120523, end: 20120525
  18. MIRTAZAPIN [Concomitant]
     Indication: PRODUCT USED FOR UNKNOWN INDICATION
     Dosage: 30 MG, QD
     Route: 048
     Dates: start: 20120224
  19. VALGANCICLOVIR [Concomitant]
     Indication: PRODUCT USED FOR UNKNOWN INDICATION
     Dosage: 900 MG, QD
     Route: 048
     Dates: start: 20120207
  20. CIPROBAY [Concomitant]
     Indication: PRODUCT USED FOR UNKNOWN INDICATION
     Dosage: 1000 MG, QD
     Route: 048
     Dates: start: 20120821, end: 20120928
  21. BELOC ZOK [Concomitant]
     Indication: PRODUCT USED FOR UNKNOWN INDICATION
     Dosage: 47.5 MG, QD
     Route: 048
     Dates: start: 20111201

REACTIONS (3)
  - Hypertensive crisis [Recovered/Resolved]
  - Anaphylactic reaction [Unknown]
  - Pneumonia [Unknown]
